FAERS Safety Report 17196235 (Version 1)
Quarter: 2019Q4

REPORT INFORMATION
  Report Type: Spontaneous
  Country: US (occurrence: US)
  Receive Date: 20191224
  Receipt Date: 20191224
  Transmission Date: 20200122
  Serious: No
  Sender: FDA-Public Use
  Company Number: US-GLAXOSMITHKLINE-US2019AMR229095

PATIENT
  Sex: Male

DRUGS (1)
  1. BENLYSTA [Suspect]
     Active Substance: BELIMUMAB
     Indication: PRODUCT USED FOR UNKNOWN INDICATION
     Dosage: UNK
     Route: 065

REACTIONS (8)
  - Abdominal pain upper [Recovering/Resolving]
  - Underdose [Unknown]
  - Accidental exposure to product [Unknown]
  - Injection site haemorrhage [Recovering/Resolving]
  - Injection site discolouration [Unknown]
  - Injection site pain [Recovering/Resolving]
  - Exposure via skin contact [Unknown]
  - Injection site bruising [Not Recovered/Not Resolved]
